FAERS Safety Report 9373501 (Version 1)
Quarter: 2013Q2

REPORT INFORMATION
  Report Type: Spontaneous
  Country: US (occurrence: US)
  Receive Date: 20130627
  Receipt Date: 20130627
  Transmission Date: 20140414
  Serious: Yes (Hospitalization)
  Sender: FDA-Public Use
  Company Number: US-WATSON-2013-11142

PATIENT
  Sex: Male
  Weight: 100 kg

DRUGS (2)
  1. HYDROCODONE-APAP (WATSON LABORATORIES) [Suspect]
     Indication: BACK PAIN
     Dosage: ^AS PRESCRIBED^
     Route: 048
     Dates: start: 20120905, end: 201209
  2. PAXIL [Concomitant]
     Indication: DEPRESSION
     Dosage: UNK
     Route: 048

REACTIONS (3)
  - Tremor [Recovered/Resolved]
  - Chills [Recovered/Resolved]
  - Disorientation [Recovered/Resolved]
